FAERS Safety Report 14665416 (Version 3)
Quarter: 2018Q2

REPORT INFORMATION
  Report Type: Spontaneous
  Country: US (occurrence: US)
  Receive Date: 20180321
  Receipt Date: 20180525
  Transmission Date: 20180711
  Serious: Yes (Disabling, Other)
  Sender: FDA-Public Use
  Company Number: US-REGENERON PHARMACEUTICALS, INC.-2018-14349

PATIENT

DRUGS (3)
  1. EYLEA [Suspect]
     Active Substance: AFLIBERCEPT
     Indication: NEOVASCULAR AGE-RELATED MACULAR DEGENERATION
     Dosage: OD, 0.05 ML, EVERY 2 MONTHS
     Route: 031
     Dates: start: 20131219
  2. EYLEA [Suspect]
     Active Substance: AFLIBERCEPT
     Indication: CHOROIDAL NEOVASCULARISATION
     Dosage: OS
  3. EYLEA [Suspect]
     Active Substance: AFLIBERCEPT
     Indication: RETINAL SCAR
     Dosage: OD, 0.05 ML, EVERY 2 MONTHS
     Route: 031
     Dates: start: 20180131, end: 20180131

REACTIONS (3)
  - Blindness transient [Recovered/Resolved]
  - Blindness unilateral [Unknown]
  - Non-infectious endophthalmitis [Recovered/Resolved]

NARRATIVE: CASE EVENT DATE: 20180131
